FAERS Safety Report 10965256 (Version 2)
Quarter: 2015Q2

REPORT INFORMATION
  Report Type: Spontaneous
  Country: US (occurrence: US)
  Receive Date: 20150330
  Receipt Date: 20150420
  Transmission Date: 20150821
  Serious: No
  Sender: FDA-Public Use
  Company Number: US-PFIZER INC-2015108886

PATIENT
  Age: 62 Year
  Sex: Female

DRUGS (4)
  1. LOSARTAN K/ HCTZ [Concomitant]
     Indication: BLOOD PRESSURE
     Dosage: LOSARTAN POTASSIUM 100 MG/ HYDROCHLOROTHIAZIDE 12.5 MG
  2. WELLBUTRIN [Concomitant]
     Active Substance: BUPROPION HYDROCHLORIDE
     Dosage: UNK
  3. SUTENT [Suspect]
     Active Substance: SUNITINIB MALATE
     Dosage: 25 MG, CYCLIC (28D ON + 14 D OFF)
     Route: 048
     Dates: start: 201406
  4. SUTENT [Suspect]
     Active Substance: SUNITINIB MALATE
     Indication: RENAL CELL CARCINOMA
     Dosage: 25 MG, DAILY (4 WKS ON 2 OFF)
     Route: 048
     Dates: start: 20150212

REACTIONS (3)
  - Fatigue [Unknown]
  - Dry skin [Unknown]
  - Hair colour changes [Unknown]

NARRATIVE: CASE EVENT DATE: 20150320
